FAERS Safety Report 5494029-2 (Version None)
Quarter: 2007Q4

REPORT INFORMATION
  Report Type: 
  Country: None (occurrence: None)
  Receive Date: 20071023
  Receipt Date: 20071011
  Transmission Date: 20080405
  Serious: Yes (Other)
  Sender: FDA-Public Use
  Company Number: GB-PFIZER INC-2007086699

PATIENT
  Sex: Male

DRUGS (1)
  1. CHAMPIX [Suspect]
     Route: 048

REACTIONS (5)
  - BLOOD GLUCOSE INCREASED [None]
  - CHILLS [None]
  - DYSPNOEA [None]
  - NASOPHARYNGITIS [None]
  - OEDEMA PERIPHERAL [None]
